FAERS Safety Report 10255565 (Version 2)
Quarter: 2014Q3

REPORT INFORMATION
  Report Type: Spontaneous
  Country: GB (occurrence: None)
  Receive Date: 20140620
  Receipt Date: 20140716
  Transmission Date: 20150326
  Serious: Yes (Other)
  Sender: FDA-Public Use
  Company Number: AUR-APL-2014-06493

PATIENT
  Age: 79 Year
  Sex: Male

DRUGS (10)
  1. PREDNISOLONE (PREDNISOLONE) [Concomitant]
     Active Substance: PREDNISOLONE
  2. CLOPIDOGREL [Suspect]
     Active Substance: CLOPIDOGREL BISULFATE
     Indication: ANTIPLATELET THERAPY
     Route: 048
     Dates: start: 201305
  3. RAMIPRIL (RAMIPRIL) [Concomitant]
     Active Substance: RAMIPRIL
  4. AMLODIPINE [Concomitant]
     Active Substance: AMLODIPINE BESYLATE
  5. LANSOPRAZOLE (LANSOPRAZOLE) [Concomitant]
     Active Substance: LANSOPRAZOLE
  6. ELIQUIS [Suspect]
     Active Substance: APIXABAN
     Indication: ATRIAL FIBRILLATION
     Route: 048
     Dates: start: 201307, end: 20140328
  7. ATORVASTATIN (ATORVASTATIN) [Concomitant]
     Active Substance: ATORVASTATIN
  8. BISOPROLOL (BISOPROLOL) [Concomitant]
     Active Substance: BISOPROLOL
  9. ASPIRIN (ACETYLSALICYLIC ACID) [Suspect]
     Active Substance: ASPIRIN
     Indication: ANTIPLATELET THERAPY
     Route: 048
     Dates: start: 201306
  10. ALFUZOSIN (ALFUZOSIN) [Concomitant]
     Active Substance: ALFUZOSIN

REACTIONS (5)
  - Purpura [None]
  - Ecchymosis [None]
  - Contraindication to medical treatment [None]
  - Drug administration error [None]
  - Haemorrhage [None]
